FAERS Safety Report 9725751 (Version 1)
Quarter: 2013Q4

REPORT INFORMATION
  Report Type: Spontaneous
  Country: GB (occurrence: GB)
  Receive Date: 20131203
  Receipt Date: 20131203
  Transmission Date: 20140711
  Serious: Yes (Death)
  Sender: FDA-Public Use
  Company Number: GB-JNJFOC-20131116792

PATIENT
  Age: 86 Year
  Sex: Female

DRUGS (7)
  1. XARELTO [Suspect]
     Indication: ATRIAL FIBRILLATION
     Route: 048
     Dates: start: 20121109, end: 20130612
  2. XARELTO [Suspect]
     Indication: CEREBROVASCULAR ACCIDENT PROPHYLAXIS
     Route: 048
     Dates: start: 20121109, end: 20130612
  3. LEVETIRACETAM [Concomitant]
     Indication: CONVULSION
     Route: 065
  4. BISOPROLOL [Concomitant]
     Indication: ATRIAL FIBRILLATION
     Route: 065
  5. CANDESARTAN [Concomitant]
     Indication: HYPERTENSION
     Route: 065
  6. ATORVASTATIN [Concomitant]
     Indication: HYPERCHOLESTEROLAEMIA
     Route: 065
  7. EPILIM CHRONO [Concomitant]
     Indication: CONVULSION
     Route: 065

REACTIONS (2)
  - Subarachnoid haemorrhage [Fatal]
  - Head injury [Fatal]
